FAERS Safety Report 4788690-5 (Version None)
Quarter: 2005Q4

REPORT INFORMATION
  Report Type: 
  Country: None (occurrence: None)
  Receive Date: 20051003
  Receipt Date: 20050516
  Transmission Date: 20060501
  Serious: Yes (Hospitalization)
  Sender: FDA-Public Use
  Company Number: 141829USA

PATIENT
  Age: 16 Year
  Sex: Female

DRUGS (2)
  1. SULFAMETHOXAZOLE + TRIMETHOPRIM [Suspect]
     Indication: CYSTITIS
     Dates: start: 20050407, end: 20050408
  2. PHENAZOPYRIDINE HCL TAB [Suspect]
     Indication: CYSTITIS
     Dates: start: 20050407

REACTIONS (2)
  - ABDOMINAL PAIN [None]
  - VOMITING [None]
